FAERS Safety Report 4462669-5 (Version None)
Quarter: 2004Q3

REPORT INFORMATION
  Report Type: 
  Country: None (occurrence: None)
  Receive Date: 20040927
  Receipt Date: 20040927
  Transmission Date: 20050211
  Serious: No
  Sender: FDA-Public Use
  Company Number: None

PATIENT
  Age: 1 Day

DRUGS (3)
  1. PURALUBE OINTMENT  FOGERA [Suspect]
     Indication: INFANT
     Dosage: ONCE OPHTHALMIC
     Route: 047
     Dates: start: 20040922, end: 20040922
  2. PURALUBE OINTMENT  FOGERA [Suspect]
     Indication: INFECTION PROPHYLAXIS
     Dosage: ONCE OPHTHALMIC
     Route: 047
     Dates: start: 20040922, end: 20040922
  3. ERYTHROMYCIN [Suspect]

REACTIONS (1)
  - MEDICATION ERROR [None]
